FAERS Safety Report 10973574 (Version 4)
Quarter: 2015Q3

REPORT INFORMATION
  Report Type: Spontaneous
  Country: US (occurrence: US)
  Receive Date: 20150401
  Receipt Date: 20150916
  Transmission Date: 20151125
  Serious: Yes (Hospitalization, Other)
  Sender: FDA-Public Use
  Company Number: US-BIOGENIDEC-2015BI040305

PATIENT
  Age: 69 Year
  Sex: Male

DRUGS (16)
  1. FUROSEMIDE. [Concomitant]
     Active Substance: FUROSEMIDE
  2. FINASTERIDE. [Concomitant]
     Active Substance: FINASTERIDE
  3. NORTRIPTYLINE HCL [Concomitant]
     Active Substance: NORTRIPTYLINE HYDROCHLORIDE
  4. TOVIAZ [Concomitant]
     Active Substance: FESOTERODINE FUMARATE
  5. JANUMET [Concomitant]
     Active Substance: METFORMIN HYDROCHLORIDE\SITAGLIPTIN PHOSPHATE
  6. METROPROLOL TARTRATE [Concomitant]
     Active Substance: METOPROLOL TARTRATE
  7. BACLOFEN. [Concomitant]
     Active Substance: BACLOFEN
  8. CYMBALTA [Concomitant]
     Active Substance: DULOXETINE HYDROCHLORIDE
  9. GLIPIZIDE ER [Concomitant]
     Active Substance: GLIPIZIDE
  10. ASPIRIN. [Concomitant]
     Active Substance: ASPIRIN
  11. TECFIDERA [Suspect]
     Active Substance: DIMETHYL FUMARATE
     Indication: MULTIPLE SCLEROSIS
     Route: 048
     Dates: start: 201308, end: 201502
  12. CARBIDOPA-LEVODOPA [Concomitant]
     Active Substance: CARBIDOPA\LEVODOPA
  13. NITROSTAT [Concomitant]
     Active Substance: NITROGLYCERIN
  14. POTASSIUM CHLORIDE CRYS ER [Concomitant]
  15. MACROBID [Concomitant]
     Active Substance: NITROFURANTOIN\NITROFURANTOIN MONOHYDRATE
  16. TAMSULOSIN HCL [Concomitant]
     Active Substance: TAMSULOSIN

REACTIONS (8)
  - Staphylococcal infection [Unknown]
  - Urinary tract infection [Unknown]
  - Hepatic encephalopathy [Unknown]
  - Feeling abnormal [Unknown]
  - Sepsis [Unknown]
  - Pneumonia [Unknown]
  - Pneumonia influenzal [Recovered/Resolved]
  - Pancreas infection [Unknown]
